FAERS Safety Report 6592611-2 (Version None)
Quarter: 2010Q1

REPORT INFORMATION
  Report Type: 
  Country: None (occurrence: None)
  Receive Date: 20100222
  Receipt Date: 20100218
  Transmission Date: 20100710
  Serious: Yes (Hospitalization, Other)
  Sender: FDA-Public Use
  Company Number: US-ASTRAZENECA-2009UW21075

PATIENT
  Age: 52 Year
  Sex: Male
  Weight: 77.1 kg

DRUGS (7)
  1. SEROQUEL [Suspect]
     Indication: DEPRESSION
     Route: 048
     Dates: start: 20050308, end: 20080219
  2. SEROQUEL [Suspect]
     Indication: POST-TRAUMATIC STRESS DISORDER
     Route: 048
     Dates: start: 20050308, end: 20080219
  3. CITALOPRAM [Concomitant]
     Indication: DEPRESSION
     Dates: start: 20050101
  4. CITALOPRAM [Concomitant]
     Dates: start: 20060101, end: 20080101
  5. TRAZODONE [Concomitant]
     Indication: DEPRESSION
     Dates: start: 20060101, end: 20080101
  6. RISPERDAL [Concomitant]
     Indication: DEPRESSION
     Dates: start: 20070101, end: 20070101
  7. DIAZEPAM [Concomitant]
     Indication: POST-TRAUMATIC STRESS DISORDER
     Dates: start: 20050101

REACTIONS (7)
  - BLOOD CHOLESTEROL INCREASED [None]
  - HYPERLIPIDAEMIA [None]
  - PANCREATIC NECROSIS [None]
  - PANCREATITIS [None]
  - PANCREATITIS CHRONIC [None]
  - SOMNOLENCE [None]
  - TYPE 2 DIABETES MELLITUS [None]
